FAERS Safety Report 9228697 (Version 2)
Quarter: 2014Q3

REPORT INFORMATION
  Report Type: Spontaneous
  Country: US (occurrence: US)
  Receive Date: 20130412
  Receipt Date: 20140808
  Transmission Date: 20150326
  Serious: Yes (Other)
  Sender: FDA-Public Use
  Company Number: US-BAYER-2013-045514

PATIENT
  Age: 35 Year
  Sex: Female
  Weight: 90.7 kg

DRUGS (8)
  1. PAXIL [Concomitant]
     Active Substance: PAROXETINE HYDROCHLORIDE
     Indication: DEPRESSION
     Dosage: UNK
     Dates: start: 2004, end: 2014
  2. AMBIEN [Concomitant]
     Active Substance: ZOLPIDEM TARTRATE
     Indication: INSOMNIA
     Dosage: UNK
     Dates: start: 2004, end: 2014
  3. QVAR [Concomitant]
     Active Substance: BECLOMETHASONE DIPROPIONATE
     Indication: ASTHMA
     Dosage: UNK
     Dates: start: 2004
  4. IBUPROFEN. [Concomitant]
     Active Substance: IBUPROFEN
     Indication: PAIN
     Dosage: 400 MG, UNK
     Dates: start: 200912
  5. XANAX [Concomitant]
     Active Substance: ALPRAZOLAM
     Indication: ANXIETY
     Dosage: UNK
     Dates: start: 2005, end: 2014
  6. SINGULAIR [Concomitant]
     Active Substance: MONTELUKAST SODIUM
     Indication: ASTHMA
     Dosage: UNK
     Dates: start: 2004
  7. YASMIN [Suspect]
     Active Substance: DROSPIRENONE\ETHINYL ESTRADIOL
     Indication: ACNE
     Dosage: UNK
     Dates: start: 2007, end: 2009
  8. ALBUTEROL. [Concomitant]
     Active Substance: ALBUTEROL
     Indication: DEPRESSION
     Dosage: UNK
     Dates: start: 2004

REACTIONS (15)
  - Varicose vein [None]
  - General physical health deterioration [None]
  - Anxiety [None]
  - Oedema [None]
  - Thrombosis [None]
  - Abdominal pain [None]
  - Peripheral arterial occlusive disease [None]
  - Peripheral swelling [None]
  - Skin discolouration [None]
  - Injury [None]
  - Pain [None]
  - Emotional distress [None]
  - Cardiovascular disorder [None]
  - Panic attack [None]
  - Deep vein thrombosis [None]

NARRATIVE: CASE EVENT DATE: 200912
